FAERS Safety Report 8798409 (Version 6)
Quarter: 2015Q2

REPORT INFORMATION
  Report Type: Spontaneous
  Country: US (occurrence: US)
  Receive Date: 20120920
  Receipt Date: 20150506
  Transmission Date: 20150821
  Serious: Yes (Hospitalization, Other)
  Sender: FDA-Public Use
  Company Number: US-009507513-1209USA004693

PATIENT
  Sex: Female
  Weight: 68.48 kg

DRUGS (4)
  1. ALENDRONATE SODIUM. [Suspect]
     Active Substance: ALENDRONATE SODIUM
     Indication: OSTEOPENIA
     Dosage: 70 MG, QW
     Route: 048
  2. ALENDRONATE SODIUM. [Suspect]
     Active Substance: ALENDRONATE SODIUM
     Indication: OSTEOPOROSIS
  3. FOSAMAX [Suspect]
     Active Substance: ALENDRONATE SODIUM
     Indication: OSTEOPOROSIS
     Dosage: 70 MG, QW
     Route: 048
     Dates: start: 2002, end: 2010
  4. FOSAMAX [Suspect]
     Active Substance: ALENDRONATE SODIUM
     Indication: OSTEOPENIA

REACTIONS (19)
  - Femur fracture [Unknown]
  - Pain in extremity [Unknown]
  - Inguinal hernia repair [Unknown]
  - Cerebrovascular accident [Unknown]
  - Cardiac murmur [Unknown]
  - Inguinal hernia [Unknown]
  - Rotator cuff syndrome [Unknown]
  - Coronary artery disease [Unknown]
  - Arthritis [Unknown]
  - Synovitis [Unknown]
  - Rheumatoid arthritis [Unknown]
  - Peripheral vascular disorder [Unknown]
  - Back pain [Unknown]
  - Open reduction of fracture [Unknown]
  - Low turnover osteopathy [Unknown]
  - Rotator cuff syndrome [Unknown]
  - Hypertension [Unknown]
  - Hypothyroidism [Unknown]
  - Arthralgia [Unknown]

NARRATIVE: CASE EVENT DATE: 2002
